FAERS Safety Report 19030670 (Version 1)
Quarter: 2021Q1

REPORT INFORMATION
  Report Type: Spontaneous
  Country: US (occurrence: US)
  Receive Date: 20210318
  Receipt Date: 20210318
  Transmission Date: 20210420
  Serious: No
  Sender: FDA-Public Use
  Company Number: None

PATIENT
  Age: 6 Week
  Sex: Male
  Weight: 5.3 kg

DRUGS (2)
  1. AEROGEN PRO?X CONTROLLER [DEVICE] [Suspect]
     Active Substance: DEVICE
  2. FLOLAN [Suspect]
     Active Substance: EPOPROSTENOL SODIUM

REACTIONS (2)
  - Heart rate increased [None]
  - Device malfunction [None]

NARRATIVE: CASE EVENT DATE: 20210313
